FAERS Safety Report 13537780 (Version 3)
Quarter: 2017Q3

REPORT INFORMATION
  Report Type: Report from Study
  Country: CA (occurrence: CA)
  Receive Date: 20170511
  Receipt Date: 20170705
  Transmission Date: 20171127
  Serious: Yes (Hospitalization)
  Sender: FDA-Public Use
  Company Number: CA-GILEAD-2017-0271665

PATIENT
  Age: 30 Year
  Sex: Male

DRUGS (2)
  1. AZTREONAM LYSINE [Suspect]
     Active Substance: AZTREONAM LYSINE
     Indication: CYSTIC FIBROSIS
     Dosage: ONE MONTH ON, ONE MONTH OFF
     Route: 055
     Dates: start: 2013
  2. AZTREONAM LYSINE [Suspect]
     Active Substance: AZTREONAM LYSINE
     Dosage: EVERY MONTH
     Route: 055
     Dates: start: 2013, end: 20170622

REACTIONS (3)
  - Drug dose omission [Recovered/Resolved]
  - Off label use [Recovered/Resolved]
  - Lung disorder [Unknown]

NARRATIVE: CASE EVENT DATE: 20170605
